FAERS Safety Report 16402333 (Version 3)
Quarter: 2025Q3

REPORT INFORMATION
  Report Type: Spontaneous
  Country: EU (occurrence: EU)
  Receive Date: 20190607
  Receipt Date: 20250807
  Transmission Date: 20251021
  Serious: Yes (Life-Threatening, Other)
  Sender: NOVARTIS
  Company Number: PHHY2019NL130040

PATIENT
  Age: 45 Year
  Sex: Female
  Weight: 61 kg

DRUGS (2)
  1. GILENYA [Suspect]
     Active Substance: FINGOLIMOD HYDROCHLORIDE
     Indication: Relapsing-remitting multiple sclerosis
     Dosage: 0.5 MG, QD
     Route: 048
     Dates: start: 20140408, end: 20190507
  2. LYRICA [Concomitant]
     Active Substance: PREGABALIN
     Indication: Product used for unknown indication
     Route: 065
     Dates: start: 2012

REACTIONS (2)
  - Diffuse large B-cell lymphoma [Not Recovered/Not Resolved]
  - Constipation [Unknown]

NARRATIVE: CASE EVENT DATE: 20190311
